FAERS Safety Report 4323570-0 (Version None)
Quarter: 2004Q1

REPORT INFORMATION
  Report Type: 
  Country: None (occurrence: None)
  Receive Date: 20040323
  Receipt Date: 20040122
  Transmission Date: 20041129
  Serious: No
  Sender: FDA-Public Use
  Company Number: US_0401100185

PATIENT
  Age: 55 Year
  Sex: Male

DRUGS (5)
  1. CIALIS [Suspect]
     Indication: ERECTILE DYSFUNCTION
     Dosage: 20 MG
     Dates: start: 20031201, end: 20040101
  2. BLOOD PRESSURE PILL [Concomitant]
  3. PREVACID [Concomitant]
  4. XANAX [Concomitant]
  5. CHOLESTEROL [Concomitant]

REACTIONS (2)
  - DYSPNOEA [None]
  - HEART RATE INCREASED [None]
